FAERS Safety Report 4825973-4 (Version None)
Quarter: 2005Q4

REPORT INFORMATION
  Report Type: 
  Country: None (occurrence: None)
  Receive Date: 20051109
  Receipt Date: 20051026
  Transmission Date: 20060501
  Serious: Yes (Hospitalization)
  Sender: FDA-Public Use
  Company Number: US-2005-010028

PATIENT
  Age: 35 Year
  Sex: Male
  Weight: 96 kg

DRUGS (7)
  1. BETASERON [Suspect]
     Indication: RELAPSING-REMITTING MULTIPLE SCLEROSIS
     Dosage: 2 MIU, EVERY 2D, SUBCUTANEOUS
     Route: 058
     Dates: start: 20041111, end: 20050609
  2. LEVOTHYROXINE SODIUM [Concomitant]
  3. LIPITOR /NET/ (ATORVASTATIN CALCIUM) [Concomitant]
  4. NEXIUM [Concomitant]
  5. MULTIVITAMINS (RETINOL, PANTHENOL) [Concomitant]
  6. WELLBUTRIN [Concomitant]
  7. XANAX [Concomitant]

REACTIONS (4)
  - FATIGUE [None]
  - MEMORY IMPAIRMENT [None]
  - MENTAL DISORDER [None]
  - THYROID NEOPLASM [None]
